FAERS Safety Report 9498027 (Version 2)
Quarter: 2013Q3

REPORT INFORMATION
  Report Type: Spontaneous
  Country: US (occurrence: US)
  Receive Date: 20130904
  Receipt Date: 20130905
  Transmission Date: 20140515
  Serious: Yes (Other)
  Sender: FDA-Public Use
  Company Number: US-ABBOTT-13P-163-1140380-00

PATIENT
  Age: 64 Year
  Sex: Female
  Weight: 60.38 kg

DRUGS (10)
  1. SYNTHROID [Suspect]
     Indication: PARATHYROIDECTOMY
     Route: 048
     Dates: start: 2003
  2. SYNTHROID [Suspect]
     Indication: PARATHYROIDECTOMY
     Dosage: ONE A DAY FOR TWO DAYS A WEEK
  3. SYNTHROID [Suspect]
     Dosage: AGAIN REDUCED TO 88 MCG ONCE A DAY FOR THREE DAYS A WEEK
  4. SYNTHROID [Suspect]
     Indication: PARATHYROIDECTOMY
     Dosage: FOR THE REMAINING FIVE DAYS A WEEK
  5. SYNTHROID [Suspect]
     Dosage: REMAINING FOUR DAYS A WEEK
  6. SYNTHROID [Suspect]
     Indication: PARATHYROIDECTOMY
  7. SYNTHROID [Suspect]
     Dates: start: 2013
  8. CALCIUM SUPPLEMENT [Concomitant]
     Indication: PRODUCT USED FOR UNKNOWN INDICATION
  9. VITAMIN D SUPPLEMENT [Concomitant]
     Indication: PRODUCT USED FOR UNKNOWN INDICATION
  10. UNSPECIFIED MEDICATION [Concomitant]
     Indication: HYPERTENSION

REACTIONS (14)
  - Palpitations [Unknown]
  - Palpitations [Unknown]
  - Laboratory test abnormal [Recovered/Resolved]
  - Malaise [Unknown]
  - Feeling abnormal [Unknown]
  - Feeling abnormal [Unknown]
  - Drug ineffective [Unknown]
  - Feeling abnormal [Unknown]
  - Chills [Recovered/Resolved]
  - Psychomotor hyperactivity [Recovered/Resolved]
  - Tremor [Recovered/Resolved]
  - Muscle twitching [Recovered/Resolved]
  - Weight decreased [Recovered/Resolved]
  - Feeling abnormal [Not Recovered/Not Resolved]
